FAERS Safety Report 24450587 (Version 1)
Quarter: 2024Q4

REPORT INFORMATION
  Report Type: Spontaneous
  Country: GR (occurrence: GR)
  Receive Date: 20241017
  Receipt Date: 20241017
  Transmission Date: 20250114
  Serious: Yes (Death, Other)
  Sender: BRISTOL-MYERS SQUIBB COMPANY
  Company Number: GR-ROCHE-3154773

PATIENT
  Sex: Male

DRUGS (13)
  1. LENALIDOMIDE [Suspect]
     Active Substance: LENALIDOMIDE
     Indication: Diffuse large B-cell lymphoma
     Dates: start: 202112
  2. RITUXIMAB [Suspect]
     Active Substance: RITUXIMAB
     Indication: Diffuse large B-cell lymphoma
     Dosage: FIRST SYSTEMIC TREATMENT
     Dates: start: 20210901, end: 20211229
  3. RITUXIMAB [Suspect]
     Active Substance: RITUXIMAB
     Dosage: SECOND SYSTEMIC THERAPY
     Dates: start: 20220301, end: 20220622
  4. POLATUZUMAB VEDOTIN [Suspect]
     Active Substance: POLATUZUMAB VEDOTIN
     Indication: Diffuse large B-cell lymphoma
     Dosage: SECOND SYSTEMIC TREATMENT
     Dates: start: 20220301, end: 20220622
  5. OXALIPLATIN [Suspect]
     Active Substance: OXALIPLATIN
     Indication: Diffuse large B-cell lymphoma
     Dates: start: 202012, end: 202103
  6. VINCRISTINE [Suspect]
     Active Substance: VINCRISTINE
     Indication: Diffuse large B-cell lymphoma
     Dosage: FIRST SYSTEMIC TREATMENT
     Dates: start: 20210901, end: 20211229
  7. PREDNISONE [Suspect]
     Active Substance: PREDNISONE
     Indication: Diffuse large B-cell lymphoma
     Dosage: FIRST SYSTEMIC TREATMENT
     Dates: start: 20210901, end: 20211229
  8. CYCLOPHOSPHAMIDE [Suspect]
     Active Substance: CYCLOPHOSPHAMIDE
     Indication: Diffuse large B-cell lymphoma
     Dosage: FIRST SYSTEMIC TREATMENT
     Dates: start: 20210901, end: 20211229
  9. EPIRUBICIN [Suspect]
     Active Substance: EPIRUBICIN
     Indication: Diffuse large B-cell lymphoma
     Dosage: FIRST SYSTEMIC TREATMENT
     Dates: start: 20210901, end: 20211229
  10. BENDAMUSTINE [Suspect]
     Active Substance: BENDAMUSTINE
     Indication: Diffuse large B-cell lymphoma
     Dosage: SECOND SYSTEMIC TREATMENT
     Dates: start: 20220301, end: 20220622
  11. IBRUTINIB [Suspect]
     Active Substance: IBRUTINIB
     Indication: Diffuse large B-cell lymphoma
     Dosage: WHEN TRANSFORMATION OCCURRED
     Dates: start: 2015, end: 202109
  12. FLUDARABINE PHOSPHATE [Suspect]
     Active Substance: FLUDARABINE PHOSPHATE
     Indication: Diffuse large B-cell lymphoma
     Dosage: 6 CYCLES
     Dates: start: 2008
  13. GEMCITABINE [Suspect]
     Active Substance: GEMCITABINE
     Indication: Diffuse large B-cell lymphoma
     Dates: start: 202012, end: 202103

REACTIONS (3)
  - Malignant neoplasm progression [Unknown]
  - Lymphoma [Fatal]
  - Off label use [Unknown]
